FAERS Safety Report 7016613-7 (Version None)
Quarter: 2010Q3

REPORT INFORMATION
  Report Type: 
  Country: None (occurrence: None)
  Receive Date: 20100927
  Receipt Date: 20100917
  Transmission Date: 20110219
  Serious: Yes (Death, Hospitalization)
  Sender: FDA-Public Use
  Company Number: B0665186A

PATIENT
  Sex: Male
  Weight: 40 kg

DRUGS (6)
  1. SALMETEROL/FLUTICASONE PROPIONATE 50/250UG [Suspect]
     Indication: CHRONIC OBSTRUCTIVE PULMONARY DISEASE
     Dosage: 500MCG PER DAY
     Route: 055
     Dates: start: 20091023, end: 20100511
  2. MUCODYNE [Concomitant]
     Indication: CHRONIC OBSTRUCTIVE PULMONARY DISEASE
     Dosage: 1500MG PER DAY
     Route: 048
  3. THYRADIN S [Concomitant]
     Dosage: 25MCG PER DAY
     Route: 048
  4. WARFARIN [Concomitant]
     Dosage: 1MG PER DAY
     Route: 048
  5. BUFFERIN [Concomitant]
     Dosage: 81MG PER DAY
     Route: 048
  6. ARTIST [Concomitant]
     Dosage: 5MG PER DAY
     Route: 048

REACTIONS (5)
  - FALL [None]
  - JAUNDICE [None]
  - PNEUMONIA BACTERIAL [None]
  - PYREXIA [None]
  - SUBARACHNOID HAEMORRHAGE [None]
